FAERS Safety Report 16382765 (Version 1)
Quarter: 2019Q2

REPORT INFORMATION
  Report Type: Spontaneous
  Country: DE (occurrence: DE)
  Receive Date: 20190603
  Receipt Date: 20190603
  Transmission Date: 20190711
  Serious: Yes (Other)
  Sender: FDA-Public Use
  Company Number: DE-PFIZER INC-2019234645

PATIENT
  Sex: Male

DRUGS (6)
  1. NITRENDIPIN [Concomitant]
     Active Substance: NITRENDIPINE
     Dosage: 1 DF, 1X/DAY
  2. PRAVASTATIN. [Concomitant]
     Active Substance: PRAVASTATIN
     Dosage: 20 MG, 1X/DAY
  3. ENALAPRIL [Concomitant]
     Active Substance: ENALAPRIL
     Dosage: 20 MG, 1X/DAY
  4. AMIODARONE HCL [Suspect]
     Active Substance: AMIODARONE HYDROCHLORIDE
     Indication: ARRHYTHMIA
     Dosage: 200 MG, 1X/DAY (1-0-0)
  5. BISOPROLOL [Concomitant]
     Active Substance: BISOPROLOL
     Dosage: 0.5 DF, 1X/DAY
  6. MARCUMAR [Concomitant]
     Active Substance: PHENPROCOUMON
     Dosage: UNK (ACCORDING TO PLAN)

REACTIONS (14)
  - Dizziness [Unknown]
  - Hypoaesthesia [Unknown]
  - Parkinsonian gait [Unknown]
  - Condition aggravated [Unknown]
  - Ataxia [Unknown]
  - Nerve injury [Unknown]
  - Balance disorder [Unknown]
  - Peripheral sensory neuropathy [Unknown]
  - Demyelinating polyneuropathy [Unknown]
  - Hyporeflexia [Unknown]
  - Peripheral nerve lesion [Unknown]
  - Gait disturbance [Unknown]
  - Areflexia [Unknown]
  - Tremor [Unknown]

NARRATIVE: CASE EVENT DATE: 2018
